FAERS Safety Report 23146680 (Version 3)
Quarter: 2024Q1

REPORT INFORMATION
  Report Type: Report from Study
  Country: GB (occurrence: GB)
  Receive Date: 20231105
  Receipt Date: 20240318
  Transmission Date: 20240409
  Serious: Yes (Other)
  Sender: FDA-Public Use
  Company Number: GB-002147023-NVSC2022GB280480

PATIENT
  Sex: Male

DRUGS (4)
  1. COSENTYX [Suspect]
     Active Substance: SECUKINUMAB
     Indication: Ankylosing spondylitis
     Dosage: 150 MG, QMO
     Route: 058
     Dates: start: 2021
  2. CIPROFLOXACIN [Concomitant]
     Active Substance: CIPROFLOXACIN
     Indication: Product used for unknown indication
     Dosage: UNK
     Route: 065
  3. ACETAMINOPHEN [Concomitant]
     Active Substance: ACETAMINOPHEN
     Indication: Product used for unknown indication
     Dosage: UNK
     Route: 065
  4. ETORICOXIB [Concomitant]
     Active Substance: ETORICOXIB
     Indication: Product used for unknown indication
     Dosage: UNK
     Route: 065

REACTIONS (14)
  - Prostate infection [Unknown]
  - Arthritis [Not Recovered/Not Resolved]
  - Ankylosing spondylitis [Unknown]
  - Influenza [Unknown]
  - Tendonitis [Unknown]
  - Musculoskeletal discomfort [Not Recovered/Not Resolved]
  - Inflammation [Unknown]
  - Nerve compression [Unknown]
  - Fatigue [Recovering/Resolving]
  - Vitamin D decreased [Recovering/Resolving]
  - Insomnia [Unknown]
  - Tendon disorder [Unknown]
  - Bone disorder [Unknown]
  - Drug ineffective [Unknown]
